FAERS Safety Report 6737547-9 (Version None)
Quarter: 2010Q2

REPORT INFORMATION
  Report Type: 
  Country: None (occurrence: None)
  Receive Date: 20100519
  Receipt Date: 20100506
  Transmission Date: 20101027
  Serious: Yes (Death, Hospitalization)
  Sender: FDA-Public Use
  Company Number: 2010AL002302

PATIENT
  Age: 86 Year
  Sex: Male

DRUGS (18)
  1. ACETAMINOPHEN + CODEINE PHOSPHATE ORAL SOLUTION USP, 120 MG/12 MG PER [Suspect]
     Indication: PAIN
     Dosage: 2 DF;QID;PO
     Route: 048
     Dates: start: 20091013, end: 20091018
  2. FEVERALL [Suspect]
     Indication: PAIN
     Dosage: 4 GM;QD;PO
     Route: 048
     Dates: start: 20091018, end: 20091019
  3. BENZYLPEMICILLIN [Concomitant]
  4. DIGOXIN [Concomitant]
  5. SPIRONOLACTONE [Concomitant]
  6. BUMETANIDE [Concomitant]
  7. NULYTELY [Concomitant]
  8. BISOPROLOL [Concomitant]
  9. OMEPRAZOLE [Concomitant]
  10. SIMVASTATIN [Concomitant]
  11. PABRINEX [Concomitant]
  12. VITAMIN B COMPOUND STRONG [Concomitant]
  13. VITAMIN C [Concomitant]
  14. CHLORDIAZEPOXIDE [Concomitant]
  15. METRONIDAZOLE [Concomitant]
  16. CYCLIZINE [Concomitant]
  17. ONDANSETRON [Concomitant]
  18. CODEINE SULFATE [Concomitant]

REACTIONS (7)
  - ACIDOSIS [None]
  - ALANINE AMINOTRANSFERASE INCREASED [None]
  - ALCOHOL WITHDRAWAL SYNDROME [None]
  - APHAGIA [None]
  - ATRIAL FIBRILLATION [None]
  - HEPATIC NECROSIS [None]
  - VOMITING [None]
